FAERS Safety Report 5564798-1 (Version None)
Quarter: 2007Q4

REPORT INFORMATION
  Report Type: 
  Country: None (occurrence: None)
  Receive Date: 20071218
  Receipt Date: 20071214
  Transmission Date: 20080405
  Serious: Yes (Hospitalization)
  Sender: FDA-Public Use
  Company Number: FR-SP-2007-03774

PATIENT
  Age: 84 Year
  Sex: Male

DRUGS (2)
  1. IMMUCYST [Suspect]
     Indication: BLADDER CANCER
     Route: 043
     Dates: start: 20070504, end: 20070604
  2. TAVANIC [Concomitant]
     Route: 048
     Dates: start: 20070512, end: 20070521

REACTIONS (3)
  - ARTHRALGIA [None]
  - ARTHRITIS [None]
  - BOVINE TUBERCULOSIS [None]
